FAERS Safety Report 7788867-0 (Version None)
Quarter: 2011Q3

REPORT INFORMATION
  Report Type: 
  Country: None (occurrence: None)
  Receive Date: 20110930
  Receipt Date: 20110920
  Transmission Date: 20111222
  Serious: Yes (Other)
  Sender: FDA-Public Use
  Company Number: AU-CELGENEUS-008-C5013-11092326

PATIENT
  Sex: Male

DRUGS (4)
  1. MELPHALAN HYDROCHLORIDE [Suspect]
     Indication: MULTIPLE MYELOMA
     Route: 065
     Dates: start: 20070623, end: 20080204
  2. CC-5013 [Suspect]
     Indication: MULTIPLE MYELOMA
     Route: 048
     Dates: start: 20081011
  3. PLACEBO FOR CC-5013 [Suspect]
     Indication: MULTIPLE MYELOMA
     Route: 048
  4. PREDNISONE [Suspect]
     Indication: MULTIPLE MYELOMA
     Route: 065

REACTIONS (2)
  - SQUAMOUS CELL CARCINOMA OF SKIN [None]
  - ACTINIC KERATOSIS [None]
